FAERS Safety Report 12615512 (Version 1)
Quarter: 2016Q3

REPORT INFORMATION
  Report Type: Spontaneous
  Country: GH (occurrence: GH)
  Receive Date: 20160802
  Receipt Date: 20160802
  Transmission Date: 20161109
  Serious: Yes (Death)
  Sender: FDA-Public Use
  Company Number: GH-ASTRAZENECA-2016SE81573

PATIENT
  Sex: Female
  Weight: 11 kg

DRUGS (2)
  1. MERONEM [Suspect]
     Active Substance: MEROPENEM
     Indication: SEPSIS
     Dosage: 400.0MG UNKNOWN
     Route: 042
  2. FLAGYL [Concomitant]
     Active Substance: METRONIDAZOLE\METRONIDAZOLE HYDROCHLORIDE
     Indication: SEPSIS

REACTIONS (1)
  - Pathogen resistance [Fatal]
